FAERS Safety Report 17165018 (Version 2)
Quarter: 2019Q4

REPORT INFORMATION
  Report Type: Spontaneous
  Country: US (occurrence: US)
  Receive Date: 20191217
  Receipt Date: 20191226
  Transmission Date: 20200122
  Serious: Yes (Hospitalization)
  Sender: FDA-Public Use
  Company Number: US-009507513-1912USA007256

PATIENT
  Sex: Male

DRUGS (2)
  1. RIFAMPIN. [Suspect]
     Active Substance: RIFAMPIN
     Dosage: UNK
  2. CUBICIN [Suspect]
     Active Substance: DAPTOMYCIN
     Indication: OSTEOMYELITIS
     Dosage: UNK

REACTIONS (4)
  - Prothrombin time shortened [Not Recovered/Not Resolved]
  - Product use in unapproved indication [Unknown]
  - International normalised ratio decreased [Not Recovered/Not Resolved]
  - Stress fracture [Not Recovered/Not Resolved]
